FAERS Safety Report 15755973 (Version 2)
Quarter: 2018Q4

REPORT INFORMATION
  Report Type: Spontaneous
  Country: TN (occurrence: TN)
  Receive Date: 20181224
  Receipt Date: 20181224
  Transmission Date: 20190205
  Serious: Yes (Other)
  Sender: FDA-Public Use
  Company Number: PHHY2018TN188871

PATIENT
  Age: 27 Year
  Sex: Male

DRUGS (6)
  1. ANTITHYMOCYTE IMMUNOGLOBULIN [Concomitant]
     Active Substance: THYMOCYTE IMMUNE GLOBULIN NOS
     Indication: BONE MARROW CONDITIONING REGIMEN
     Dosage: 30 MG/KG, QD
     Route: 065
  2. CICLOSPORIN [Suspect]
     Active Substance: CYCLOSPORINE
     Indication: PROPHYLAXIS AGAINST GRAFT VERSUS HOST DISEASE
  3. METHOTREXATE. [Suspect]
     Active Substance: METHOTREXATE
     Indication: BONE MARROW TRANSPLANT
     Route: 065
  4. CYCLOPHOSPHAMIDE. [Concomitant]
     Active Substance: CYCLOPHOSPHAMIDE
     Indication: BONE MARROW CONDITIONING REGIMEN
     Dosage: 50 MG/KG, QD
     Route: 065
  5. METHOTREXATE. [Suspect]
     Active Substance: METHOTREXATE
     Indication: PROPHYLAXIS AGAINST GRAFT VERSUS HOST DISEASE
  6. CICLOSPORIN [Suspect]
     Active Substance: CYCLOSPORINE
     Indication: BONE MARROW TRANSPLANT
     Route: 065

REACTIONS (11)
  - Hyperbilirubinaemia [Unknown]
  - Pyrexia [Recovered/Resolved]
  - Product use in unapproved indication [Unknown]
  - Haemophagocytic lymphohistiocytosis [Unknown]
  - Neutropenia [Unknown]
  - Haemolytic anaemia [Unknown]
  - Plasmodium falciparum infection [Recovered/Resolved]
  - Febrile neutropenia [Unknown]
  - Thrombocytopenia [Unknown]
  - Pancytopenia [Unknown]
  - Hyponatraemia [Unknown]
